FAERS Safety Report 6237672-5 (Version None)
Quarter: 2009Q2

REPORT INFORMATION
  Report Type: 
  Country: None (occurrence: None)
  Receive Date: 20090617
  Receipt Date: 20090601
  Transmission Date: 20091009
  Serious: Yes (Other)
  Sender: FDA-Public Use
  Company Number: 2007S1002438

PATIENT
  Age: 56 Year
  Sex: Female

DRUGS (6)
  1. PHOSPHOSODA FLAVOR NOT SPECIFIED [Suspect]
     Indication: COLONOSCOPY
     Dosage: PO
     Route: 048
     Dates: start: 20050524, end: 20050524
  2. PREMARIN [Concomitant]
  3. LISINOPRIL AND HYDROCHLOROTHIAZIDE [Concomitant]
  4. ATENOLOL [Concomitant]
  5. FENTANYL-100 [Concomitant]
  6. VERSED [Concomitant]

REACTIONS (9)
  - ANOREXIA [None]
  - DRUG TOXICITY [None]
  - DYSGEUSIA [None]
  - FATIGUE [None]
  - HYPERPHOSPHATAEMIA [None]
  - INJURY [None]
  - RENAL FAILURE [None]
  - RENAL TUBULAR NECROSIS [None]
  - WEIGHT DECREASED [None]
